FAERS Safety Report 7563830-3 (Version None)
Quarter: 2011Q2

REPORT INFORMATION
  Report Type: 
  Country: None (occurrence: None)
  Receive Date: 20110622
  Receipt Date: 20101105
  Transmission Date: 20111010
  Serious: No
  Sender: FDA-Public Use
  Company Number: US-TYCO HEALTHCARE/MALLINCKRODT-T201002257

PATIENT
  Sex: Female
  Weight: 7.256 kg

DRUGS (3)
  1. TECHNESCAN MAG3 [Suspect]
     Indication: RENAL SCAN
     Dosage: UNK
     Route: 042
     Dates: start: 20101018, end: 20101018
  2. TECHNESCAN MAG3 [Suspect]
     Dosage: UNK
     Route: 042
     Dates: start: 20101018, end: 20101018
  3. TECHNETIUM TC 99M GENERATOR [Suspect]
     Indication: RENAL SCAN
     Dosage: 1.1 MCI, SINGLE
     Route: 042
     Dates: start: 20101018, end: 20101018

REACTIONS (2)
  - INJECTION SITE EXTRAVASATION [None]
  - DRUG ADMINISTRATION ERROR [None]
